FAERS Safety Report 21007635 (Version 1)
Quarter: 2022Q2

REPORT INFORMATION
  Report Type: Spontaneous
  Country: US (occurrence: US)
  Receive Date: 20220626
  Receipt Date: 20220626
  Transmission Date: 20220721
  Serious: No
  Sender: FDA-Public Use
  Company Number: US-drreddys-SPO/USA/22/0151194

PATIENT
  Age: 23 Year

DRUGS (2)
  1. ZENATANE [Suspect]
     Active Substance: ISOTRETINOIN
     Indication: Acne
     Dosage: RMA ISSUE DATE: 12 NOVEMBER 2021 12:00:00 AM; 16 DECEMBER 2021 12:06:34 PM; 17 JANUARY 2022 12:42:07
  2. ZENATANE [Suspect]
     Active Substance: ISOTRETINOIN
     Dosage: RMA ISSUE DATE: 05 APRIL 2022 10:25:23 AM

REACTIONS (1)
  - Treatment noncompliance [Unknown]
